FAERS Safety Report 25964359 (Version 1)
Quarter: 2025Q4

REPORT INFORMATION
  Report Type: Spontaneous
  Country: US (occurrence: US)
  Receive Date: 20251027
  Receipt Date: 20251027
  Transmission Date: 20260117
  Serious: Yes (Other)
  Sender: NOVO NORDISK
  Company Number: US-NOVOPROD-1546828

PATIENT
  Age: 71 Year
  Sex: Female

DRUGS (1)
  1. NOVOLOG [Suspect]
     Active Substance: INSULIN ASPART
     Indication: Type 2 diabetes mellitus
     Dosage: 40 IU, TID (120 UNITS/DIALY)
     Dates: start: 2010

REACTIONS (3)
  - Cataract [Recovered/Resolved]
  - Cataract [Recovered/Resolved]
  - Visual impairment [Unknown]
